FAERS Safety Report 13853549 (Version 1)
Quarter: 2017Q3

REPORT INFORMATION
  Report Type: Other
  Country: None (occurrence: US)
  Receive Date: 20170809
  Receipt Date: 20170809
  Transmission Date: 20171127
  Serious: No
  Sender: FDA-Public Use
  Company Number: US-MEDAC PHARMA, INC.-2024408

PATIENT
  Age: 22 Year
  Sex: Male

DRUGS (1)
  1. METHOTREXATE. [Suspect]
     Active Substance: METHOTREXATE
     Indication: ERYTHEMA ANNULARE

REACTIONS (6)
  - Condition aggravated [Recovering/Resolving]
  - Eosinophilia [Recovering/Resolving]
  - Joint stiffness [Unknown]
  - Blister [Unknown]
  - Joint swelling [Unknown]
  - Leukocytosis [Recovered/Resolved]
